FAERS Safety Report 5326438-6 (Version None)
Quarter: 2007Q2

REPORT INFORMATION
  Report Type: 
  Country: None (occurrence: None)
  Receive Date: 20070516
  Receipt Date: 20070508
  Transmission Date: 20071010
  Serious: Yes (Hospitalization)
  Sender: FDA-Public Use
  Company Number: JP-MERCK-0704USA04276

PATIENT
  Age: 85 Year
  Sex: Female

DRUGS (7)
  1. FOSAMAX [Suspect]
     Indication: OSTEOPOROSIS
     Route: 048
     Dates: start: 20070302, end: 20070406
  2. FOSAMAX [Suspect]
     Indication: BACK PAIN
     Route: 048
     Dates: start: 20070302, end: 20070406
  3. URSO 250 [Suspect]
     Indication: HEPATIC FUNCTION ABNORMAL
     Route: 048
     Dates: start: 20070302, end: 20070406
  4. URSO 250 [Suspect]
     Route: 048
     Dates: start: 20070309, end: 20070406
  5. LUPRAC [Concomitant]
     Indication: OEDEMA
     Route: 048
     Dates: start: 20061104
  6. ALDACTONE [Concomitant]
     Indication: OEDEMA
     Route: 048
     Dates: start: 20061104
  7. LIVACT [Concomitant]
     Indication: HYPOALBUMINAEMIA
     Route: 048
     Dates: start: 20010623

REACTIONS (1)
  - GENERALISED OEDEMA [None]
